FAERS Safety Report 24411214 (Version 1)
Quarter: 2024Q4

REPORT INFORMATION
  Report Type: Spontaneous
  Country: US (occurrence: US)
  Receive Date: 20241008
  Receipt Date: 20241008
  Transmission Date: 20250115
  Serious: No
  Sender: ABBVIE
  Company Number: US-ABBVIE-5947879

PATIENT
  Sex: Male

DRUGS (1)
  1. HUMIRA [Suspect]
     Active Substance: ADALIMUMAB
     Indication: Hidradenitis
     Dosage: FORM STRENGTH- 40 MG
     Route: 058
     Dates: start: 20200102

REACTIONS (3)
  - Injection site discharge [Not Recovered/Not Resolved]
  - Injection site erythema [Unknown]
  - Wrong technique in product usage process [Not Recovered/Not Resolved]
